FAERS Safety Report 21135107 (Version 1)
Quarter: 2022Q3

REPORT INFORMATION
  Report Type: Spontaneous
  Country: US (occurrence: US)
  Receive Date: 20220727
  Receipt Date: 20220727
  Transmission Date: 20221027
  Serious: No
  Sender: FDA-Public Use
  Company Number: US-ENDO PHARMACEUTICALS INC-2021-010207

PATIENT
  Sex: Male
  Weight: 86.168 kg

DRUGS (10)
  1. EDEX [Suspect]
     Active Substance: ALPROSTADIL
     Indication: Product used for unknown indication
     Dosage: 10 MCG, UNKNOWN, AS DIRECTED
     Route: 017
  2. EDEX [Suspect]
     Active Substance: ALPROSTADIL
     Indication: Product used for unknown indication
     Dosage: 10 MCG, UNKNOWN, AS DIRECTED
     Route: 017
  3. EDEX [Suspect]
     Active Substance: ALPROSTADIL
     Indication: Product used for unknown indication
     Dosage: 10 MCG, UNKNOWN, AS DIRECTED
     Route: 017
  4. EDEX [Suspect]
     Active Substance: ALPROSTADIL
     Indication: Product used for unknown indication
     Dosage: 10 MCG, UNKNOWN, AS DIRECTED
     Route: 017
  5. EDEX [Suspect]
     Active Substance: ALPROSTADIL
     Dosage: 40 MCG, UNKNOWN, AS DIRECTED
     Route: 017
  6. EDEX [Suspect]
     Active Substance: ALPROSTADIL
     Dosage: 40 MCG, UNKNOWN, AS DIRECTED
     Route: 017
  7. EDEX [Suspect]
     Active Substance: ALPROSTADIL
     Dosage: 40 MCG, UNKNOWN, AS DIRECTED
     Route: 017
  8. EDEX [Suspect]
     Active Substance: ALPROSTADIL
     Dosage: 40 MCG, UNKNOWN, AS DIRECTED
     Route: 017
  9. CLOMID [Concomitant]
     Active Substance: CLOMIPHENE CITRATE
     Indication: Product used for unknown indication
     Dosage: 25 MG, QOD
     Route: 065
  10. CIALIS [Concomitant]
     Active Substance: TADALAFIL
     Indication: Product used for unknown indication
     Dosage: 10 MG, DAILY
     Route: 065

REACTIONS (1)
  - Blood testosterone decreased [Unknown]
